FAERS Safety Report 11789697 (Version 1)
Quarter: 2015Q4

REPORT INFORMATION
  Report Type: Spontaneous
  Country: IT (occurrence: IT)
  Receive Date: 20151201
  Receipt Date: 20151201
  Transmission Date: 20160305
  Serious: Yes (Hospitalization)
  Sender: FDA-Public Use
  Company Number: IT-TEVA-611135ACC

PATIENT
  Age: 54 Year
  Sex: Female

DRUGS (1)
  1. QUETIAPINE [Suspect]
     Active Substance: QUETIAPINE
     Indication: DRUG ABUSE
     Dosage: TOTAL
     Route: 065
     Dates: start: 20141124, end: 20141124

REACTIONS (2)
  - Toxicity to various agents [Unknown]
  - Drug abuse [Unknown]

NARRATIVE: CASE EVENT DATE: 20141124
